FAERS Safety Report 22645582 (Version 1)
Quarter: 2023Q2

REPORT INFORMATION
  Report Type: Spontaneous
  Country: None (occurrence: NL)
  Receive Date: 20230627
  Receipt Date: 20230627
  Transmission Date: 20230722
  Serious: Yes (Death, Hospitalization, Other)
  Sender: FDA-Public Use
  Company Number: NL-B.Braun Medical Inc.-2143156

PATIENT
  Age: 64 Year
  Sex: Male

DRUGS (10)
  1. CEFTAZIDIME AND DEXTROSE [Suspect]
     Active Substance: CEFTAZIDIME
     Indication: Pseudomonas infection
  2. METRONIDAZOLE [Suspect]
     Active Substance: METRONIDAZOLE
  3. AMOXICILLIN\CLAVULANIC ACID [Suspect]
     Active Substance: AMOXICILLIN\CLAVULANIC ACID
  4. MEROPENEM [Suspect]
     Active Substance: MEROPENEM
  5. AMPHOTERICIN B [Suspect]
     Active Substance: AMPHOTERICIN B
  6. CEFUROXIME [Suspect]
     Active Substance: CEFUROXIME
  7. TOBRAMYCIN [Suspect]
     Active Substance: TOBRAMYCIN
  8. AZATHIOPRINE [Concomitant]
     Active Substance: AZATHIOPRINE
  9. PREDNISONE [Concomitant]
     Active Substance: PREDNISONE
  10. MYCOPHENOLIC ACID [Concomitant]
     Active Substance: MYCOPHENOLIC ACID

REACTIONS (8)
  - Multiple organ dysfunction syndrome [Fatal]
  - Respiratory failure [Fatal]
  - Weight decreased [Fatal]
  - Night sweats [Fatal]
  - Condition aggravated [Fatal]
  - Drug ineffective [Fatal]
  - Chills [Fatal]
  - Pyrexia [Fatal]
